FAERS Safety Report 9851237 (Version 2)
Quarter: 2014Q1

REPORT INFORMATION
  Report Type: Report from Study
  Country: DE (occurrence: DE)
  Receive Date: 20140128
  Receipt Date: 20140227
  Transmission Date: 20141002
  Serious: Yes (Hospitalization)
  Sender: FDA-Public Use
  Company Number: DE-AMGEN-DEUCT2014005494

PATIENT
  Age: 11 Year
  Sex: Male
  Weight: 68 kg

DRUGS (3)
  1. ETANERCEPT [Suspect]
     Indication: PRODUCT USED FOR UNKNOWN INDICATION
     Dosage: 25 MG, 2 TIMES/WK
     Route: 058
     Dates: start: 20030310, end: 20040104
  2. LANTAREL [Concomitant]
     Indication: ARTHRITIS
     Dosage: 15 MG, WEEKLY
     Route: 048
     Dates: start: 20020701
  3. PROXEN                             /00256201/ [Concomitant]
     Indication: ARTHRITIS
     Dosage: 500 MG, DAILY
     Route: 048
     Dates: start: 200201

REACTIONS (3)
  - Arthritis infective [Recovered/Resolved]
  - Superinfection bacterial [Recovered/Resolved]
  - Arthritis [Recovered/Resolved]
